FAERS Safety Report 19680183 (Version 2)
Quarter: 2021Q3

REPORT INFORMATION
  Report Type: Spontaneous
  Country: CA (occurrence: CA)
  Receive Date: 20210810
  Receipt Date: 20210907
  Transmission Date: 20211014
  Serious: Yes (Hospitalization, Other)
  Sender: FDA-Public Use
  Company Number: CA-PFIZER INC-202100998664

PATIENT
  Age: 61 Year
  Sex: Female
  Weight: 77 kg

DRUGS (5)
  1. INFLECTRA [Concomitant]
     Active Substance: INFLIXIMAB-DYYB
     Indication: NEUROSARCOIDOSIS
     Dosage: 400 MG Q 0, 2, 6 WEEK DOSE, THEN Q 6 WEEKS
     Dates: start: 20210713
  2. INFLECTRA [Concomitant]
     Active Substance: INFLIXIMAB-DYYB
     Dosage: 5 MG/KG Q 2, 6 WEEK DOSE, THEN EVERY 6 WEEKSNOT YET STARTED
     Route: 042
  3. METHOTREXATE SODIUM. [Suspect]
     Active Substance: METHOTREXATE SODIUM
     Indication: NEUROSARCOIDOSIS
     Dosage: 25 MG, WEEKLY
     Route: 048
     Dates: start: 202106
  4. PREDNISONE. [Concomitant]
     Active Substance: PREDNISONE
     Indication: NEUROSARCOIDOSIS
     Dosage: 60 MG, DAILY, TAPERING DOSE
     Dates: start: 202103
  5. HYDROMORPHONE [Concomitant]
     Active Substance: HYDROMORPHONE
     Dosage: 9 MG, AS NEEDED
     Route: 048

REACTIONS (6)
  - Diplopia [Unknown]
  - Drug ineffective for unapproved indication [Unknown]
  - Loss of consciousness [Unknown]
  - Off label use [Unknown]
  - Muscular weakness [Unknown]
  - Condition aggravated [Unknown]

NARRATIVE: CASE EVENT DATE: 2021
